FAERS Safety Report 18581848 (Version 1)
Quarter: 2020Q4

REPORT INFORMATION
  Report Type: Spontaneous
  Country: BE (occurrence: BE)
  Receive Date: 20201204
  Receipt Date: 20201204
  Transmission Date: 20210114
  Serious: Yes (Hospitalization, Other)
  Sender: FDA-Public Use
  Company Number: BE-TEVA-2020-BE-1853828

PATIENT
  Age: 13 Year
  Sex: Female

DRUGS (17)
  1. ADRIAMYCIN [Concomitant]
     Active Substance: DOXORUBICIN HYDROCHLORIDE
     Indication: ACUTE LYMPHOCYTIC LEUKAEMIA
     Dosage: TOTAL DOSE OF 50 MG/M2, RECEIVED BEFORE THE OCCURENCE OF MYELOPATHY
     Route: 065
  2. CYTOSINE ARABINOSIDE [Suspect]
     Active Substance: CYTARABINE
     Indication: ACUTE LYMPHOCYTIC LEUKAEMIA
     Dosage: TOTAL DOSE OF 2G/M2, RECEIVED BEFORE THE OCCURENCE OF MYELOPATHY
     Route: 065
  3. ERWINIASE [Concomitant]
     Active Substance: ASPARAGINASE
     Indication: ACUTE LYMPHOCYTIC LEUKAEMIA
     Route: 065
  4. 6-THIOGUANINE [Concomitant]
     Active Substance: THIOGUANINE ANHYDROUS
     Indication: ACUTE LYMPHOCYTIC LEUKAEMIA
     Route: 065
  5. PREDNISOLONE. [Suspect]
     Active Substance: PREDNISOLONE
     Indication: ACUTE LYMPHOCYTIC LEUKAEMIA
     Dosage: 1620 MG/M2 RECEIVED BEFORE THE OCCURENCE OF MYELOPATHY
     Route: 065
  6. DEXAMETHASONE. [Suspect]
     Active Substance: DEXAMETHASONE
     Indication: ACUTE LYMPHOCYTIC LEUKAEMIA
     Dosage: 252 MG/M2 RECEIVED BEFORE THE OCCURENCE OF MYELOPATHY
     Route: 065
  7. CYCLOPHOSPHAMIDE. [Concomitant]
     Active Substance: CYCLOPHOSPHAMIDE
     Indication: ACUTE LYMPHOCYTIC LEUKAEMIA
     Dosage: TOTAL DOSE OF 2G/M2, RECEIVED BEFORE THE OCCURENCE OF MYELOPATHY
     Route: 065
  8. MITOXANTRONE [Concomitant]
     Active Substance: MITOXANTRONE HYDROCHLORIDE
     Indication: ACUTE LYMPHOCYTIC LEUKAEMIA
     Dosage: TOTAL DOSE OF 8 MG/M2, RECEIVED BEFORE THE OCCURENCE OF MYELOPATHY
     Route: 065
  9. ARACYTINE [Suspect]
     Active Substance: CYTARABINE
     Indication: ACUTE LYMPHOCYTIC LEUKAEMIA
     Dosage: 15MG RECEIVED 16 INJECTIONS
     Route: 037
  10. ETOPOSIDE. [Concomitant]
     Active Substance: ETOPOSIDE
     Indication: ACUTE LYMPHOCYTIC LEUKAEMIA
     Dosage: TOTAL DOSE OF 458 MG/M2, RECEIVED BEFORE THE OCCURENCE OF MYELOPATHY
     Route: 065
  11. DAUNORUBICIN [Concomitant]
     Active Substance: DAUNORUBICIN
     Indication: ACUTE LYMPHOCYTIC LEUKAEMIA
     Dosage: TOTAL DOSE OF 120 MG/M2, RECEIVED BEFORE THE OCCURENCE OF MYELOPATHY
     Route: 065
  12. PEG/L-ASPARAGINASE [Suspect]
     Active Substance: PEGASPARGASE
     Indication: ACUTE LYMPHOCYTIC LEUKAEMIA
     Dosage: 9898 U/M2, RECEIVED BEFORE THE OCCURENCE OF MYELOPATHY
     Route: 065
  13. METHOTREXATE. [Suspect]
     Active Substance: METHOTREXATE
     Indication: ACUTE LYMPHOCYTIC LEUKAEMIA
     Dosage: 5 G/M2/COURSE (FOR ONE DOSE). RECEIVED TOTAL 4 DOSES= 20G/M2
     Route: 042
  14. METHOTREXATE. [Suspect]
     Active Substance: METHOTREXATE
     Dosage: 12 MG RECEIVED TOTAL 16 INJECTION
     Route: 037
  15. VINCRISTINE [Concomitant]
     Active Substance: VINCRISTINE
     Indication: ACUTE LYMPHOCYTIC LEUKAEMIA
     Dosage: TOTAL DOSE OF 10.16 MG/M2, RECEIVED BEFORE THE OCCURENCE OF MYELOPATHY
     Route: 065
  16. SOLU-MEDROL [Suspect]
     Active Substance: METHYLPREDNISOLONE SODIUM SUCCINATE
     Indication: ACUTE LYMPHOCYTIC LEUKAEMIA
     Dosage: 30 MG RECEIVED 16 INJECTIONS
     Route: 037
  17. 6-MERCAPTOPURINE [Concomitant]
     Active Substance: MERCAPTOPURINE
     Indication: ACUTE LYMPHOCYTIC LEUKAEMIA
     Dosage: TOTAL DOSE OF 2773 MG/M2, RECEIVED BEFORE THE OCCURENCE OF MYELOPATHY
     Route: 065

REACTIONS (6)
  - Jaundice cholestatic [Unknown]
  - Osteonecrosis [Unknown]
  - Myelitis transverse [Recovered/Resolved]
  - Myelopathy [Recovered/Resolved]
  - Type 1 diabetes mellitus [Unknown]
  - Hypertriglyceridaemia [Unknown]
